FAERS Safety Report 18028404 (Version 1)
Quarter: 2020Q3

REPORT INFORMATION
  Report Type: Report from Study
  Country: None (occurrence: AR)
  Receive Date: 20200716
  Receipt Date: 20200716
  Transmission Date: 20201103
  Serious: Yes (Other)
  Sender: FDA-Public Use
  Company Number: AR-ABBVIE-20K-007-3483043-00

PATIENT
  Age: 32 Year
  Sex: Female

DRUGS (1)
  1. HUMIRA [Suspect]
     Active Substance: ADALIMUMAB
     Indication: CROHN^S DISEASE
     Route: 058
     Dates: start: 20190313

REACTIONS (4)
  - Skin lesion [Unknown]
  - Hypersensitivity vasculitis [Recovering/Resolving]
  - Blister [Unknown]
  - Rash macular [Unknown]

NARRATIVE: CASE EVENT DATE: 20200515
